FAERS Safety Report 26078233 (Version 1)
Quarter: 2025Q4

REPORT INFORMATION
  Report Type: Other
  Country: US (occurrence: US)
  Receive Date: 20251122
  Receipt Date: 20251122
  Transmission Date: 20260118
  Serious: Yes (Other)
  Sender: SERVIER
  Company Number: US-SERVIER-S25016596

PATIENT

DRUGS (1)
  1. IVOSIDENIB [Suspect]
     Active Substance: IVOSIDENIB
     Indication: B-cell type acute leukaemia
     Dosage: 500 MG, QD
     Route: 048

REACTIONS (4)
  - Pancytopenia [Recovered/Resolved]
  - Pancytopenia [Unknown]
  - Acute myeloid leukaemia [Unknown]
  - Anaemia [Unknown]
